FAERS Safety Report 21653240 (Version 2)
Quarter: 2023Q1

REPORT INFORMATION
  Report Type: Spontaneous
  Country: US (occurrence: US)
  Receive Date: 20221128
  Receipt Date: 20230129
  Transmission Date: 20230417
  Serious: Yes (Other)
  Sender: FDA-Public Use
  Company Number: US-JNJFOC-20221148040

PATIENT
  Sex: Female

DRUGS (17)
  1. BALVERSA [Suspect]
     Active Substance: ERDAFITINIB
     Indication: Product used for unknown indication
     Route: 048
     Dates: start: 20220428
  2. BALVERSA [Suspect]
     Active Substance: ERDAFITINIB
     Route: 048
  3. BALVERSA [Suspect]
     Active Substance: ERDAFITINIB
     Route: 048
  4. BALVERSA [Suspect]
     Active Substance: ERDAFITINIB
     Route: 048
  5. BALVERSA [Suspect]
     Active Substance: ERDAFITINIB
     Route: 048
  6. ELIQUIS [Concomitant]
     Active Substance: APIXABAN
     Indication: Atrial fibrillation
  7. OMEPRAZOLE [Concomitant]
     Active Substance: OMEPRAZOLE
     Indication: Dyspepsia
  8. METOPROLOL TARTRATE [Concomitant]
     Active Substance: METOPROLOL TARTRATE
     Indication: Blood pressure measurement
     Dosage: 1/2 A DAY
  9. ROSUVASTATIN [Concomitant]
     Active Substance: ROSUVASTATIN
     Indication: Blood pressure measurement
  10. TORSEMIDE [Concomitant]
     Active Substance: TORSEMIDE
     Indication: Peripheral swelling
  11. FLUTICASONE PROPIONATE [Concomitant]
     Active Substance: FLUTICASONE PROPIONATE
     Dosage: DOSE: 20 MCG AND 2 SPRAYS
  12. INSULIN NOS [Concomitant]
     Active Substance: INSULIN NOS
     Indication: Diabetes mellitus
     Dosage: 18 UNITS
  13. CHONDROITIN;GLUCOSAMINE [Concomitant]
     Dosage: 1500 MG , 1200 MG
  14. VITAMIN B COMPLEX [Concomitant]
     Active Substance: CYANOCOBALAMIN\DEXPANTHENOL\NIACINAMIDE\PYRIDOXINE HYDROCHLORIDE\RIBOFLAVIN 5^-PHOSPHATE SODIUM\THIA
  15. FERGON [Concomitant]
     Active Substance: FERROUS GLUCONATE
     Indication: Anaemia
  16. TYLENOL [Concomitant]
     Active Substance: ACETAMINOPHEN
  17. TYLENOL PM [Concomitant]
     Active Substance: ACETAMINOPHEN\DIPHENHYDRAMINE

REACTIONS (1)
  - Diabetes mellitus [Unknown]
